FAERS Safety Report 4603725-8 (Version None)
Quarter: 2005Q1

REPORT INFORMATION
  Report Type: 
  Country: None (occurrence: None)
  Receive Date: 20050308
  Receipt Date: 20050208
  Transmission Date: 20050727
  Serious: Yes (Other)
  Sender: FDA-Public Use
  Company Number: 200415294BCC

PATIENT
  Age: 67 Year
  Sex: Female
  Weight: 70.3075 kg

DRUGS (6)
  1. MILK OF MAGNESIA TAB [Suspect]
     Indication: CONSTIPATION
     Dosage: 60 ML, QD, ORAL
     Route: 048
     Dates: start: 20041013, end: 20041016
  2. TENORMIN [Concomitant]
  3. HYTRIN [Concomitant]
  4. MAXZIDE [Concomitant]
  5. NITROGLYCERIN CREAM [Concomitant]
  6. COLACE [Concomitant]

REACTIONS (10)
  - ABDOMINAL PAIN [None]
  - ASTHENIA [None]
  - DIARRHOEA [None]
  - DIZZINESS [None]
  - FAECES DISCOLOURED [None]
  - GASTRIC DISORDER [None]
  - HAEMATOCHEZIA [None]
  - HELICOBACTER INFECTION [None]
  - MELAENA [None]
  - POISONING [None]
